FAERS Safety Report 16018003 (Version 1)
Quarter: 2019Q1

REPORT INFORMATION
  Report Type: Spontaneous
  Country: US (occurrence: US)
  Receive Date: 20190228
  Receipt Date: 20190228
  Transmission Date: 20190418
  Serious: Yes (Death, Hospitalization, Other)
  Sender: FDA-Public Use
  Company Number: US-PFIZER INC-2018403587

PATIENT
  Age: 82 Year
  Sex: Female
  Weight: 63 kg

DRUGS (1)
  1. IBRANCE [Suspect]
     Active Substance: PALBOCICLIB
     Indication: BREAST CANCER FEMALE
     Dosage: 100 MG, DAILY
     Route: 048
     Dates: start: 20170808, end: 20180626

REACTIONS (4)
  - Dysphagia [Unknown]
  - Weight decreased [Unknown]
  - Death [Fatal]
  - Oesophageal ulcer [Unknown]

NARRATIVE: CASE EVENT DATE: 20180809
